FAERS Safety Report 6850066-4 (Version None)
Quarter: 2010Q3

REPORT INFORMATION
  Report Type: 
  Country: None (occurrence: None)
  Receive Date: 20100716
  Receipt Date: 20071211
  Transmission Date: 20110219
  Serious: No
  Sender: FDA-Public Use
  Company Number: US-PFIZER INC-2007085498

PATIENT
  Sex: Female
  Weight: 68.6 kg

DRUGS (3)
  1. CHANTIX [Suspect]
     Indication: SMOKING CESSATION THERAPY
     Dates: start: 20070731
  2. VYTORIN [Concomitant]
     Indication: BLOOD CHOLESTEROL INCREASED
  3. PLAVIX [Concomitant]

REACTIONS (2)
  - ARTHRALGIA [None]
  - BLOOD GLUCOSE INCREASED [None]
